FAERS Safety Report 9300127 (Version 1)
Quarter: 2013Q1

REPORT INFORMATION
  Report Type: Spontaneous
  Country: US (occurrence: None)
  Receive Date: 20121220
  Receipt Date: 20121220
  Transmission Date: 20140127
  Serious: Yes (Other)
  Sender: FDA-Public Use
  Company Number: 1208USA002386

PATIENT
  Sex: Female

DRUGS (6)
  1. ZETIA (EZETIMIBE) [Suspect]
     Indication: HYPERCHOLESTEROLAEMIA
     Route: 048
     Dates: start: 20120602, end: 20120611
  2. VITAMIN D (UNSPECIFIED) VITAMIN D) (UNSPECIFIED) [Concomitant]
  3. ADVAIR (FLTUICASONE PROPIONATE, SALMETEROL XINAFOATE) [Concomitant]
  4. VERAMYST (FLUTICASONE FUROATE) [Concomitant]
  5. LEVOTHYROXINE SODIUM (LEVOTHYROXINE SODIUM) [Concomitant]
  6. LORATADINE (LORATRADINE) [Concomitant]

REACTIONS (1)
  - Hepatic enzyme increased [None]
